FAERS Safety Report 22394113 (Version 1)
Quarter: 2023Q2

REPORT INFORMATION
  Report Type: Spontaneous
  Country: FR (occurrence: FR)
  Receive Date: 20230601
  Receipt Date: 20230601
  Transmission Date: 20230721
  Serious: Yes (Other)
  Sender: FDA-Public Use
  Company Number: FR-JNJFOC-20230569193

PATIENT
  Age: 64 Year
  Sex: Female

DRUGS (1)
  1. SIMPONI [Suspect]
     Active Substance: GOLIMUMAB
     Indication: Polyarthritis
     Route: 058
     Dates: start: 20230407

REACTIONS (20)
  - Near death experience [Unknown]
  - Angina pectoris [Unknown]
  - Pyrexia [Unknown]
  - Dizziness [Unknown]
  - Rash [Unknown]
  - Dyspnoea [Unknown]
  - Suffocation feeling [Unknown]
  - Pain in extremity [Unknown]
  - Haematoma [Unknown]
  - Night sweats [Unknown]
  - Bedridden [Unknown]
  - Nausea [Unknown]
  - Vision blurred [Unknown]
  - Asthenia [Unknown]
  - Insomnia [Unknown]
  - Pruritus [Unknown]
  - Arthralgia [Unknown]
  - Blood pressure decreased [Unknown]
  - Hypokinesia [Unknown]
  - Musculoskeletal stiffness [Unknown]

NARRATIVE: CASE EVENT DATE: 20230427
